FAERS Safety Report 5969006-5 (Version None)
Quarter: 2008Q4

REPORT INFORMATION
  Report Type: 
  Country: None (occurrence: None)
  Receive Date: 20081125
  Receipt Date: 20081125
  Transmission Date: 20090506
  Serious: Yes (Disabling)
  Sender: FDA-Public Use
  Company Number: None

PATIENT
  Age: 82 Year
  Sex: Female
  Weight: 53.978 kg

DRUGS (1)
  1. PRISTIQ [Suspect]
     Indication: DEPRESSION
     Dosage: 1X DAY BY MOUTH
     Route: 048
     Dates: start: 20080715, end: 20080722

REACTIONS (3)
  - AMNESIA [None]
  - COGNITIVE DISORDER [None]
  - SPEECH DISORDER [None]
